FAERS Safety Report 7640312-1 (Version None)
Quarter: 2011Q3

REPORT INFORMATION
  Report Type: 
  Country: None (occurrence: None)
  Receive Date: 20110728
  Receipt Date: 20080407
  Transmission Date: 20111222
  Serious: Yes (Death, Other)
  Sender: FDA-Public Use
  Company Number: US-BAYER-200826596NA

PATIENT
  Age: 41 Year
  Sex: Male
  Weight: 79.365 kg

DRUGS (10)
  1. TRASYLOL [Suspect]
     Indication: ARTERIAL BYPASS OPERATION
     Dosage: LOADING DOSE- 200CC FOLLOWED BY 50ML/HR
     Route: 042
     Dates: start: 20060327, end: 20060328
  2. TOPROL-XL [Concomitant]
     Dosage: 50 MG, QD
     Route: 048
  3. FENTANYL [Concomitant]
     Dosage: 100-150MG
     Route: 042
  4. HEPARIN [Concomitant]
     Dosage: 2000 UNITS
     Route: 042
  5. ASPIRIN [Concomitant]
     Dosage: 81 MG, QD
     Route: 048
  6. NITROGLYCERIN [Concomitant]
     Dosage: DRIP @ 9ML/HR
     Route: 042
  7. TRASYLOL [Suspect]
     Indication: AORTIC BYPASS
  8. PROTAMINE SULFATE [Concomitant]
     Dosage: 500MG
     Route: 042
  9. NORVASC [Concomitant]
     Dosage: 100 MG, TID
     Route: 048
  10. PROTONIX [Concomitant]
     Dosage: UNKNOWN
     Route: 042

REACTIONS (13)
  - ANXIETY [None]
  - RENAL FAILURE [None]
  - RENAL INJURY [None]
  - FEAR [None]
  - UNEVALUABLE EVENT [None]
  - ANHEDONIA [None]
  - INJURY [None]
  - STRESS [None]
  - DEATH [None]
  - PAIN [None]
  - EMOTIONAL DISTRESS [None]
  - RENAL IMPAIRMENT [None]
  - DEPRESSION [None]
